FAERS Safety Report 5400204-5 (Version None)
Quarter: 2007Q3

REPORT INFORMATION
  Report Type: 
  Country: None (occurrence: None)
  Receive Date: 20070727
  Receipt Date: 20070727
  Transmission Date: 20080115
  Serious: Yes (Hospitalization)
  Sender: FDA-Public Use
  Company Number: None

PATIENT
  Sex: Male
  Weight: 84 kg

DRUGS (9)
  1. ZOMETA [Suspect]
     Indication: OSTEOPENIA
     Dosage: 4 MG Q 90 DAYS X 4 IV
     Route: 042
     Dates: start: 20070629
  2. ATIVAN [Concomitant]
  3. COLACE [Concomitant]
  4. DECADRON [Concomitant]
  5. DILANTIN KAPSEAL [Concomitant]
  6. HYDROCHLOROTHIAZIDE [Concomitant]
  7. DILANTIN KAPSEAL [Concomitant]
  8. KEPPRA [Concomitant]
  9. ZANTAC 150 [Concomitant]

REACTIONS (3)
  - MUSCULAR WEAKNESS [None]
  - NEUROPATHY [None]
  - PYREXIA [None]
